FAERS Safety Report 20655051 (Version 1)
Quarter: 2022Q1

REPORT INFORMATION
  Report Type: Spontaneous
  Country: US (occurrence: None)
  Receive Date: 20220330
  Receipt Date: 20220330
  Transmission Date: 20220423
  Serious: Yes (Hospitalization)
  Sender: FDA-Public Use
  Company Number: None

PATIENT
  Age: 75 Year
  Sex: Male

DRUGS (3)
  1. COPAXONE [Suspect]
     Active Substance: GLATIRAMER ACETATE
     Indication: Multiple sclerosis
     Dosage: FREQUENCY : 3 TIMES A WEEK;?
     Route: 058
     Dates: start: 20150226
  2. ALENDRONATE [Suspect]
     Active Substance: ALENDRONATE SODIUM
  3. DALFAMPRIDINE [Suspect]
     Active Substance: DALFAMPRIDINE

REACTIONS (1)
  - Sepsis [None]

NARRATIVE: CASE EVENT DATE: 20220326
